FAERS Safety Report 12886796 (Version 1)
Quarter: 2016Q4

REPORT INFORMATION
  Report Type: Report from Study
  Country: None (occurrence: US)
  Receive Date: 20161026
  Receipt Date: 20161026
  Transmission Date: 20170207
  Serious: Yes (Hospitalization, Other)
  Sender: FDA-Public Use
  Company Number: US-ABBVIE-16K-163-1723507-00

PATIENT
  Age: 56 Year
  Sex: Male

DRUGS (1)
  1. HUMIRA [Suspect]
     Active Substance: ADALIMUMAB
     Indication: ANKYLOSING SPONDYLITIS
     Route: 058
     Dates: start: 20160606, end: 20160815

REACTIONS (3)
  - Rash [Recovered/Resolved]
  - Staphylococcal skin infection [Recovered/Resolved]
  - Scrotal abscess [Recovered/Resolved]

NARRATIVE: CASE EVENT DATE: 20160820
